FAERS Safety Report 6420708-6 (Version None)
Quarter: 2009Q4

REPORT INFORMATION
  Report Type: 
  Country: None (occurrence: None)
  Receive Date: 20091027
  Receipt Date: 20040510
  Transmission Date: 20100525
  Serious: Yes (Hospitalization)
  Sender: FDA-Public Use
  Company Number: 2009011210

PATIENT
  Age: 34 Year
  Sex: Female
  Weight: 74.8435 kg

DRUGS (7)
  1. ACTIQ [Suspect]
     Indication: PAIN
     Dosage: 3600 MCG (600 MCG, 6 IN 1 D), BU; 3600 MCG (1200 MCG, 3 IN 1 D), BU
     Route: 002
     Dates: end: 20040501
  2. ACTIQ [Suspect]
     Indication: PAIN
     Dosage: 3600 MCG (600 MCG, 6 IN 1 D), BU; 3600 MCG (1200 MCG, 3 IN 1 D), BU
     Route: 002
     Dates: start: 20000101
  3. DURAGESIC-100 [Concomitant]
  4. COUMADIN [Concomitant]
  5. EFFEXOR SR (VENLAFAXINE) [Concomitant]
  6. LIPITOR [Concomitant]
  7. PROTONIX (PANTROPRAZOLE) [Concomitant]

REACTIONS (3)
  - BLOOD AMYLASE INCREASED [None]
  - LIPASE INCREASED [None]
  - PANCREATITIS ACUTE [None]
